FAERS Safety Report 4439725-0 (Version None)
Quarter: 2004Q3

REPORT INFORMATION
  Report Type: 
  Country: None (occurrence: None)
  Receive Date: 20040901
  Receipt Date: 20040901
  Transmission Date: 20050211
  Serious: Yes (Life-Threatening, Hospitalization)
  Sender: FDA-Public Use
  Company Number: None

PATIENT
  Age: 44 Year
  Sex: Male
  Weight: 75 kg

DRUGS (2)
  1. ELSPAR [Suspect]
     Indication: ACUTE LYMPHOCYTIC LEUKAEMIA
     Dosage: 20000 UNITS Q2 WEEKS SQ
     Route: 058
     Dates: start: 20040702, end: 20040831
  2. METHOTREXATE [Concomitant]

REACTIONS (4)
  - ANAPHYLACTOID REACTION [None]
  - CARDIO-RESPIRATORY ARREST [None]
  - CHEST PAIN [None]
  - COMA [None]
